FAERS Safety Report 21416554 (Version 1)
Quarter: 2022Q4

REPORT INFORMATION
  Report Type: Spontaneous
  Country: US (occurrence: US)
  Receive Date: 20221006
  Receipt Date: 20221006
  Transmission Date: 20230113
  Serious: Yes (Other)
  Sender: FDA-Public Use
  Company Number: US-ALLERGAN-2221702US

PATIENT
  Sex: Female

DRUGS (3)
  1. VRAYLAR [Suspect]
     Active Substance: CARIPRAZINE
     Indication: Product used for unknown indication
     Dosage: 6 MG, QD
     Route: 048
  2. VRAYLAR [Suspect]
     Active Substance: CARIPRAZINE
     Dosage: UNK
     Route: 048
     Dates: start: 2022, end: 2022
  3. VRAYLAR [Suspect]
     Active Substance: CARIPRAZINE
     Dosage: UNK
     Route: 048

REACTIONS (1)
  - Parkinsonism [Recovering/Resolving]
